FAERS Safety Report 17389873 (Version 1)
Quarter: 2020Q1

REPORT INFORMATION
  Report Type: Spontaneous
  Country: DE (occurrence: DE)
  Receive Date: 20200207
  Receipt Date: 20200207
  Transmission Date: 20200409
  Serious: Yes (Disabling)
  Sender: FDA-Public Use
  Company Number: NVSC2020DE026220

PATIENT
  Age: 55 Year
  Sex: Female
  Weight: 75 kg

DRUGS (2)
  1. IBRANCE [Suspect]
     Active Substance: PALBOCICLIB
     Indication: BREAST CANCER METASTATIC
     Dosage: 125 MG, QD  (DAY 1-21)
     Route: 048
     Dates: start: 20161213
  2. LETROZOLE. [Suspect]
     Active Substance: LETROZOLE
     Indication: BREAST CANCER METASTATIC
     Dosage: 2.5 MG, QD
     Route: 048
     Dates: start: 20161213

REACTIONS (4)
  - Dysgeusia [Not Recovered/Not Resolved]
  - Rhinorrhoea [Not Recovered/Not Resolved]
  - Anosmia [Not Recovered/Not Resolved]
  - Nasal inflammation [Not Recovered/Not Resolved]

NARRATIVE: CASE EVENT DATE: 201904
